FAERS Safety Report 5588631-7 (Version None)
Quarter: 2008Q1

REPORT INFORMATION
  Report Type: 
  Country: None (occurrence: None)
  Receive Date: 20080111
  Receipt Date: 20080110
  Transmission Date: 20080703
  Serious: Yes (Hospitalization)
  Sender: FDA-Public Use
  Company Number: DEWYE024804OCT05

PATIENT
  Sex: Male

DRUGS (4)
  1. RAPAMUNE [Suspect]
     Indication: PROPHYLAXIS AGAINST TRANSPLANT REJECTION
     Dosage: UNKNOWN
     Route: 048
     Dates: start: 20050403, end: 20050711
  2. CORTICOSTEROID NOS [Concomitant]
     Dosage: UNKNOWN
     Route: 048
  3. ZENAPAX [Concomitant]
     Dosage: UNKNOWN
  4. TACROLIMUS [Concomitant]
     Dosage: UNKNOWN
     Route: 048

REACTIONS (2)
  - COMPLICATIONS OF TRANSPLANTED KIDNEY [None]
  - LYMPHOCELE [None]
